FAERS Safety Report 5844982-X (Version None)
Quarter: 2008Q3

REPORT INFORMATION
  Report Type: 
  Country: None (occurrence: None)
  Receive Date: 20080814
  Receipt Date: 20080811
  Transmission Date: 20090109
  Serious: Yes (Life-Threatening)
  Sender: FDA-Public Use
  Company Number: JP-ASTRAZENECA-2008AP04743

PATIENT
  Age: 74 Year
  Sex: Male
  Weight: 67 kg

DRUGS (4)
  1. ZOLADEX [Suspect]
     Indication: PROSTATE CANCER
     Route: 058
     Dates: start: 20080507, end: 20080604
  2. CASODEX [Suspect]
     Indication: PROSTATE CANCER
     Route: 048
     Dates: start: 20080507, end: 20080613
  3. ZYLORIC [Suspect]
     Indication: HYPERURICAEMIA
     Route: 048
     Dates: start: 20080609, end: 20080613
  4. PROSTAL [Concomitant]
     Indication: PROSTATE CANCER
     Route: 048
     Dates: start: 20080422, end: 20080507

REACTIONS (1)
  - INTERSTITIAL LUNG DISEASE [None]
